FAERS Safety Report 17516204 (Version 1)
Quarter: 2020Q1

REPORT INFORMATION
  Report Type: Spontaneous
  Country: CO (occurrence: CO)
  Receive Date: 20200309
  Receipt Date: 20200309
  Transmission Date: 20200409
  Serious: Yes (Hospitalization)
  Sender: FDA-Public Use
  Company Number: CO-PFIZER INC-2020101305

PATIENT
  Age: 62 Year
  Sex: Female

DRUGS (1)
  1. REAMPLA [Suspect]
     Active Substance: PALBOCICLIB
     Dosage: 100 MG, CYCLIC (TOOK 21 DAYS AND REST 8 DAYS)
     Route: 048
     Dates: start: 201905

REACTIONS (3)
  - Gastrointestinal fistula [Recovered/Resolved]
  - Mobility decreased [Unknown]
  - Suture rupture [Recovered/Resolved]
